FAERS Safety Report 8261896-9 (Version None)
Quarter: 2012Q2

REPORT INFORMATION
  Report Type: 
  Country: None (occurrence: None)
  Receive Date: 20120402
  Receipt Date: 20120319
  Transmission Date: 20120825
  Serious: Yes (Hospitalization)
  Sender: FDA-Public Use
  Company Number: 2012MA003934

PATIENT
  Age: 35 Year
  Sex: Female

DRUGS (4)
  1. VENLAFAXINE [Suspect]
     Indication: DEPRESSION
     Dosage: 50 MG;QD;PO
     Route: 048
     Dates: start: 20111207, end: 20111223
  2. CYAMEMAZINE (CYAMEMAZINE) [Suspect]
     Indication: DEPRESSION
     Dosage: 90 MG;QD;PO
     Route: 048
     Dates: start: 20111201, end: 20111213
  3. ZYPREXA [Suspect]
     Indication: DEPRESSION
     Dosage: 20 MG;QD;PO
     Route: 048
     Dates: start: 20111201, end: 20111223
  4. ATARAX [Suspect]
     Indication: PRURITUS
     Dosage: 300 MG;QD;PO
     Route: 048
     Dates: start: 20111221

REACTIONS (1)
  - CYTOLYTIC HEPATITIS [None]
